FAERS Safety Report 10653723 (Version 1)
Quarter: 2014Q4

REPORT INFORMATION
  Report Type: Spontaneous
  Country: GB (occurrence: GB)
  Receive Date: 20141216
  Receipt Date: 20141216
  Transmission Date: 20150529
  Serious: Yes (Life-Threatening)
  Sender: FDA-Public Use
  Company Number: GB-009507513-1412GBR007047

PATIENT
  Age: 11 Year
  Sex: Male
  Weight: 37.9 kg

DRUGS (1)
  1. TIMOTHY, STANDARDIZED [Suspect]
     Active Substance: PHLEUM PRATENSE POLLEN
     Indication: SEASONAL ALLERGY
     Dosage: 75000 SQ-T, QD
     Route: 060
     Dates: start: 20140924, end: 20141126

REACTIONS (10)
  - Laryngeal oedema [Recovered/Resolved]
  - Vomiting [Recovered/Resolved]
  - Dry throat [Recovered/Resolved]
  - Throat irritation [Recovered/Resolved]
  - Nausea [Recovered/Resolved]
  - Tongue disorder [Recovered/Resolved]
  - Ear pruritus [Recovered/Resolved]
  - Dysphonia [Recovered/Resolved]
  - Oral pruritus [Recovered/Resolved]
  - Oral disorder [Recovered/Resolved]

NARRATIVE: CASE EVENT DATE: 20140924
